FAERS Safety Report 6163898-5 (Version None)
Quarter: 2009Q2

REPORT INFORMATION
  Report Type: 
  Country: None (occurrence: None)
  Receive Date: 20090420
  Receipt Date: 20090407
  Transmission Date: 20091009
  Serious: Yes (Disabling, Other)
  Sender: FDA-Public Use
  Company Number: GXKR2009GB04438

PATIENT
  Age: 73 Year
  Sex: Male
  Weight: 76 kg

DRUGS (4)
  1. DOXYCYCLINE [Suspect]
     Indication: SINUSITIS
     Dosage: 100 MG, ORAL
     Route: 048
     Dates: start: 20090113, end: 20090116
  2. BECLOMETHASONE DIPROPIONATE [Concomitant]
  3. ACETAMINOPHEN [Concomitant]
  4. SALBUTAMOL (SALBUTAMOL) [Concomitant]

REACTIONS (1)
  - JAUNDICE [None]
